FAERS Safety Report 5159915-1 (Version None)
Quarter: 2006Q4

REPORT INFORMATION
  Report Type: 
  Country: None (occurrence: None)
  Receive Date: 20061129
  Receipt Date: 20061120
  Transmission Date: 20070319
  Serious: Yes (Other)
  Sender: FDA-Public Use
  Company Number: 2006UW25782

PATIENT
  Sex: Male

DRUGS (1)
  1. SEROQUEL [Suspect]
     Indication: BIPOLAR DISORDER
     Dosage: BEGAN ON STARTER PACK AND DOSE PUSHED UP TO 800 MG QD NIGHT
     Route: 048

REACTIONS (2)
  - BLADDER OBSTRUCTION [None]
  - INSOMNIA [None]
